FAERS Safety Report 9255886 (Version 1)
Quarter: 2013Q2

REPORT INFORMATION
  Report Type: Spontaneous
  Country: BR (occurrence: BR)
  Receive Date: 20130425
  Receipt Date: 20130425
  Transmission Date: 20140414
  Serious: Yes (Other)
  Sender: FDA-Public Use
  Company Number: BR-ABBOTT-13P-020-1080038-00

PATIENT
  Sex: Male
  Weight: 94 kg

DRUGS (3)
  1. HUMIRA [Suspect]
     Indication: ANKYLOSING SPONDYLITIS
     Route: 058
     Dates: start: 2010, end: 20130319
  2. PHENOFIBRATE [Concomitant]
     Indication: BLOOD TRIGLYCERIDES
     Route: 048
  3. AZULFIN [Concomitant]
     Indication: OSTEOARTHRITIS
     Dosage: 3 TABLETS DAILY
     Route: 048

REACTIONS (2)
  - Arterial disorder [Unknown]
  - General symptom [Recovering/Resolving]
